FAERS Safety Report 13375605 (Version 2)
Quarter: 2017Q2

REPORT INFORMATION
  Report Type: Spontaneous
  Country: US (occurrence: US)
  Receive Date: 20170328
  Receipt Date: 20170530
  Transmission Date: 20170830
  Serious: Yes (Death, Other)
  Sender: FDA-Public Use
  Company Number: US-SUN PHARMACEUTICAL INDUSTRIES LTD-2017US-136652

PATIENT

DRUGS (1)
  1. OCTREOTIDE. [Suspect]
     Active Substance: OCTREOTIDE
     Indication: HYPERINSULINISM
     Dosage: UNK, QID
     Route: 042

REACTIONS (6)
  - Lung disorder [Fatal]
  - Cardiopulmonary failure [Fatal]
  - Cardiomyopathy [Fatal]
  - Sepsis [Fatal]
  - Drug administered to patient of inappropriate age [Unknown]
  - Off label use [Unknown]
